FAERS Safety Report 7898643-6 (Version None)
Quarter: 2011Q4

REPORT INFORMATION
  Report Type: 
  Country: None (occurrence: None)
  Receive Date: 20111107
  Receipt Date: 20111107
  Transmission Date: 20120403
  Serious: Yes (Hospitalization, Disabling)
  Sender: FDA-Public Use
  Company Number: None

PATIENT
  Age: 27 Year
  Sex: Female
  Weight: 76.203 kg

DRUGS (1)
  1. PARAGARD T 380A [Suspect]
     Indication: CONTRACEPTION
     Dosage: NONE
     Route: 015
     Dates: start: 20101101, end: 20110930

REACTIONS (2)
  - MATERNAL EXPOSURE DURING PREGNANCY [None]
  - PREGNANCY TEST POSITIVE [None]
